FAERS Safety Report 7288912-5 (Version None)
Quarter: 2011Q1

REPORT INFORMATION
  Report Type: 
  Country: None (occurrence: None)
  Receive Date: 20110211
  Receipt Date: 20110208
  Transmission Date: 20110831
  Serious: Yes (Other)
  Sender: FDA-Public Use
  Company Number: GB-ABBOTT-11P-167-0703756-00

PATIENT
  Age: 53 Year

DRUGS (2)
  1. HUMIRA [Suspect]
     Indication: RHEUMATOID NODULE
  2. HUMIRA [Suspect]
     Indication: RHEUMATOID ARTHRITIS

REACTIONS (2)
  - ANTIPHOSPHOLIPID ANTIBODIES POSITIVE [None]
  - CEREBROVASCULAR ACCIDENT [None]
